FAERS Safety Report 10384330 (Version 3)
Quarter: 2014Q4

REPORT INFORMATION
  Report Type: Spontaneous
  Country: US (occurrence: US)
  Receive Date: 20140814
  Receipt Date: 20141003
  Transmission Date: 20150528
  Serious: No
  Sender: FDA-Public Use
  Company Number: US-PFIZER INC-2014223495

PATIENT
  Age: 61 Year
  Sex: Female

DRUGS (1)
  1. INLYTA [Suspect]
     Active Substance: AXITINIB
     Indication: RENAL CANCER
     Dosage: 40 MG, 2X/DAY
     Dates: start: 20130315

REACTIONS (2)
  - Disease progression [Unknown]
  - Renal cancer [Unknown]
